FAERS Safety Report 9314411 (Version 1)
Quarter: 2013Q2

REPORT INFORMATION
  Report Type: Spontaneous
  Country: JP (occurrence: None)
  Receive Date: 20130524
  Receipt Date: 20130524
  Transmission Date: 20140414
  Serious: Yes (Hospitalization)
  Sender: FDA-Public Use
  Company Number: CC400180507

PATIENT
  Age: 57 Year
  Sex: Male

DRUGS (1)
  1. CEFTRIAXONE FOR INJECTION (+) DEXTROSE INJECTION [Suspect]
     Indication: PNEUMONIA
     Route: 042

REACTIONS (2)
  - Cholangitis [None]
  - Bile duct stone [None]
